FAERS Safety Report 13328829 (Version 1)
Quarter: 2017Q1

REPORT INFORMATION
  Report Type: Spontaneous
  Country: US (occurrence: US)
  Receive Date: 20170312
  Receipt Date: 20170312
  Transmission Date: 20170428
  Serious: Yes (Life-Threatening)
  Sender: FDA-Public Use
  Company Number: None

PATIENT
  Age: 62 Year
  Sex: Female
  Weight: 73.8 kg

DRUGS (12)
  1. COQ10 [Concomitant]
     Active Substance: UBIDECARENONE
  2. METFORMIN [Concomitant]
     Active Substance: METFORMIN HYDROCHLORIDE
  3. MULTI VITAMIN [Concomitant]
     Active Substance: VITAMINS
  4. ARMOR TYROID [Concomitant]
  5. VITAMIN B12 [Concomitant]
     Active Substance: CYANOCOBALAMIN
  6. RED YEAST RICE [Concomitant]
     Active Substance: DIETARY SUPPLEMENT
  7. CALCIUM [Concomitant]
     Active Substance: CALCIUM
  8. VITIMINE D [Concomitant]
  9. LOSARTIN [Concomitant]
     Active Substance: LOSARTAN
  10. CEFUROXIME AXETIL 500 MG TAB [Suspect]
     Active Substance: CEFUROXIME AXETIL
     Indication: SINUSITIS
     Dosage: ?          QUANTITY:1 TABLET(S);?
     Route: 048
     Dates: start: 20170304, end: 20170309
  11. MAGNESIUM [Concomitant]
     Active Substance: MAGNESIUM
  12. GLIMAPRIDE [Concomitant]

REACTIONS (6)
  - Tremor [None]
  - Back pain [None]
  - Panic reaction [None]
  - Blood glucose increased [None]
  - Renal pain [None]
  - Anxiety [None]

NARRATIVE: CASE EVENT DATE: 20170304
